FAERS Safety Report 20492571 (Version 9)
Quarter: 2022Q3

REPORT INFORMATION
  Report Type: Report from Study
  Country: US (occurrence: US)
  Receive Date: 20220219
  Receipt Date: 20220805
  Transmission Date: 20221027
  Serious: Yes (Other)
  Sender: FDA-Public Use
  Company Number: US-NOVARTISTESTPH-NVSC2022US038190

PATIENT
  Sex: Male

DRUGS (2)
  1. ENTRESTO [Suspect]
     Active Substance: SACUBITRIL\VALSARTAN
     Indication: Product used for unknown indication
     Dosage: UNK (STARTED APPROX 3-4 YEARS AGO)
     Route: 048
  2. FUROSEMIDE [Concomitant]
     Active Substance: FUROSEMIDE
     Indication: Product used for unknown indication
     Dosage: 20 MG (SPLITS TABLET TO MAKE 20MG)
     Route: 065

REACTIONS (13)
  - Device inappropriate shock delivery [Unknown]
  - Nasal congestion [Unknown]
  - Constipation [Unknown]
  - Temperature intolerance [Unknown]
  - Chest pain [Unknown]
  - Cardiac disorder [Unknown]
  - Tendonitis [Unknown]
  - Memory impairment [Unknown]
  - Muscle atrophy [Unknown]
  - Blepharospasm [Unknown]
  - Tremor [Unknown]
  - Vein disorder [Unknown]
  - Fatigue [Unknown]
